FAERS Safety Report 21415461 (Version 1)
Quarter: 2022Q4

REPORT INFORMATION
  Report Type: Spontaneous
  Country: CN (occurrence: CN)
  Receive Date: 20221006
  Receipt Date: 20221006
  Transmission Date: 20230113
  Serious: Yes (Other)
  Sender: FDA-Public Use
  Company Number: None

PATIENT
  Age: 34 Year
  Sex: Male
  Weight: 65 kg

DRUGS (6)
  1. CYCLOPHOSPHAMIDE [Suspect]
     Active Substance: CYCLOPHOSPHAMIDE
     Indication: T-cell type acute leukaemia
     Dosage: 200 MG, QD, INJECTION, DILUTED WITH 0.9% SODIUM CHLORIDE
     Route: 041
     Dates: start: 20220818, end: 20220822
  2. SODIUM CHLORIDE [Suspect]
     Active Substance: SODIUM CHLORIDE
     Indication: Medication dilution
     Dosage: 250 ML, QD, DILUTED IN CYCLOPHOSPHAMIDE FOR INJECTION (200 MG)
     Route: 041
     Dates: start: 20220818, end: 20220822
  3. SODIUM CHLORIDE [Suspect]
     Active Substance: SODIUM CHLORIDE
     Dosage: 50 ML, Q7D, DILUTED IN VINCRISTINE SULFATE FOR INJECTION (2 MG)
     Route: 041
     Dates: start: 20220818, end: 20220906
  4. SODIUM CHLORIDE [Suspect]
     Active Substance: SODIUM CHLORIDE
     Dosage: 250 ML, Q7D, DILUTED IN DAUNORUBICIN HYDROCHLORIDE FOR INJECTION (50 MG)
     Route: 041
     Dates: start: 20220818, end: 20220906
  5. DAUNORUBICIN HYDROCHLORIDE [Suspect]
     Active Substance: DAUNORUBICIN HYDROCHLORIDE
     Indication: T-cell type acute leukaemia
     Dosage: 50 MG, Q7D, DILUTED WITH 0.9% SODIUM CHLORIDE
     Route: 041
     Dates: start: 20220818, end: 20220906
  6. VINCRISTINE SULFATE [Suspect]
     Active Substance: VINCRISTINE SULFATE
     Indication: T-cell type acute leukaemia
     Dosage: 2 MG, Q7D, DILUTED WITH 0.9% SODIUM CHLORIDE
     Route: 041
     Dates: start: 20220818, end: 20220906

REACTIONS (1)
  - Myelosuppression [Unknown]

NARRATIVE: CASE EVENT DATE: 20220907
